FAERS Safety Report 21944945 (Version 4)
Quarter: 2023Q2

REPORT INFORMATION
  Report Type: Report from Study
  Country: US (occurrence: None)
  Receive Date: 20230202
  Receipt Date: 20230404
  Transmission Date: 20230722
  Serious: Yes (Other)
  Sender: FDA-Public Use
  Company Number: US-Merck Healthcare KGaA-9358545

PATIENT
  Sex: Female

DRUGS (2)
  1. MAVENCLAD [Suspect]
     Active Substance: CLADRIBINE
     Indication: Multiple sclerosis
     Dosage: YEAR ONE CYCLE ONE THERAPY
     Route: 048
     Dates: start: 20220118, end: 20220122
  2. MAVENCLAD [Suspect]
     Active Substance: CLADRIBINE
     Dosage: YEAR ONE CYCLE TWO THERAPY
     Route: 048
     Dates: start: 20220213, end: 20220217

REACTIONS (5)
  - Tooth loss [Not Recovered/Not Resolved]
  - Sleep apnoea syndrome [Unknown]
  - Lhermitte^s sign [Unknown]
  - Gingivitis [Unknown]
  - Respiratory tract congestion [Not Recovered/Not Resolved]
